FAERS Safety Report 6007113-1 (Version None)
Quarter: 2008Q4

REPORT INFORMATION
  Report Type: 
  Country: None (occurrence: None)
  Receive Date: 20081217
  Receipt Date: 20080116
  Transmission Date: 20090506
  Serious: Yes (Hospitalization, Other)
  Sender: FDA-Public Use
  Company Number: US-ASTRAZENECA-2008UW01238

PATIENT
  Age: 65 Year
  Sex: Male
  Weight: 118.4 kg

DRUGS (7)
  1. CRESTOR [Suspect]
     Indication: HYPERCHOLESTEROLAEMIA
     Route: 048
     Dates: start: 20040614
  2. CRESTOR [Suspect]
     Route: 048
     Dates: start: 20050221
  3. ASPIRIN [Concomitant]
  4. ENALAPRIL MALEATE [Concomitant]
  5. TOPROL-XL [Concomitant]
  6. VERA MIST [Concomitant]
  7. OMACOR [Concomitant]

REACTIONS (2)
  - PANCREATITIS [None]
  - PYREXIA [None]
